FAERS Safety Report 5046583-2 (Version None)
Quarter: 2006Q2

REPORT INFORMATION
  Report Type: 
  Country: None (occurrence: None)
  Receive Date: 20060601
  Receipt Date: 20060213
  Transmission Date: 20061013
  Serious: No
  Sender: FDA-Public Use
  Company Number: 2006PV008622

PATIENT
  Age: 70 Year
  Sex: Male
  Weight: 63.5036 kg

DRUGS (6)
  1. BYETTA [Suspect]
     Indication: DIABETES MELLITUS NON-INSULIN-DEPENDENT
     Dosage: 5 MCG BID SC ; 10 MCG BID SC ; 5 MCG BID SC
     Route: 058
     Dates: start: 20050825, end: 20051101
  2. BYETTA [Suspect]
     Indication: DIABETES MELLITUS NON-INSULIN-DEPENDENT
     Dosage: 5 MCG BID SC ; 10 MCG BID SC ; 5 MCG BID SC
     Route: 058
     Dates: start: 20051101, end: 20051101
  3. BYETTA [Suspect]
     Indication: DIABETES MELLITUS NON-INSULIN-DEPENDENT
     Dosage: 5 MCG BID SC ; 10 MCG BID SC ; 5 MCG BID SC
     Route: 058
     Dates: start: 20051101, end: 20051101
  4. AMARYL [Concomitant]
  5. ACTOS [Concomitant]
  6. PRANDIN [Concomitant]

REACTIONS (3)
  - BLOOD GLUCOSE INCREASED [None]
  - DIZZINESS [None]
  - HYPOGLYCAEMIA [None]
